FAERS Safety Report 10190176 (Version 2)
Quarter: 2014Q2

REPORT INFORMATION
  Report Type: Spontaneous
  Country: US (occurrence: US)
  Receive Date: 20140522
  Receipt Date: 20140617
  Transmission Date: 20141212
  Serious: Yes (Other)
  Sender: FDA-Public Use
  Company Number: US-TEVA-482347USA

PATIENT
  Age: 44 Year
  Sex: Female
  Weight: 76.27 kg

DRUGS (9)
  1. NUVIGIL [Suspect]
     Indication: DEPRESSION
     Dates: start: 201401
  2. NUVIGIL [Suspect]
     Indication: FATIGUE
  3. NUVIGIL [Suspect]
     Indication: ASTHENIA
  4. CYMBALTA [Concomitant]
  5. SEROQUEL [Concomitant]
  6. VYVANSE [Concomitant]
  7. SYNTHROID [Concomitant]
  8. VITAMIN D [Concomitant]
  9. MULTIVITAMIN [Concomitant]

REACTIONS (7)
  - Paralysis [Not Recovered/Not Resolved]
  - Muscle fatigue [Not Recovered/Not Resolved]
  - Muscular weakness [Not Recovered/Not Resolved]
  - Fatigue [Not Recovered/Not Resolved]
  - Asthenia [Not Recovered/Not Resolved]
  - Off label use [Unknown]
  - Myalgia [Not Recovered/Not Resolved]
